FAERS Safety Report 13888140 (Version 1)
Quarter: 2017Q3

REPORT INFORMATION
  Report Type: Spontaneous
  Country: US (occurrence: US)
  Receive Date: 20170822
  Receipt Date: 20170822
  Transmission Date: 20171127
  Serious: No
  Sender: FDA-Public Use
  Company Number: US-ROCHE-1537839

PATIENT
  Sex: Female

DRUGS (1)
  1. ACTEMRA [Suspect]
     Active Substance: TOCILIZUMAB
     Indication: RHEUMATOID ARTHRITIS
     Route: 058
     Dates: start: 20140825, end: 20150107

REACTIONS (5)
  - Lip swelling [Unknown]
  - Oral disorder [Unknown]
  - Palatal swelling [Unknown]
  - Gastric disorder [Unknown]
  - Chapped lips [Unknown]
